FAERS Safety Report 21831817 (Version 2)
Quarter: 2023Q2

REPORT INFORMATION
  Report Type: Report from Study
  Country: US (occurrence: US)
  Receive Date: 20230106
  Receipt Date: 20230411
  Transmission Date: 20230721
  Serious: Yes (Life-Threatening, Hospitalization, Other)
  Sender: FDA-Public Use
  Company Number: US-AMGEN-USACT2022154728

PATIENT
  Age: 66 Year
  Sex: Male
  Weight: 70.5 kg

DRUGS (9)
  1. BLINATUMOMAB [Suspect]
     Active Substance: BLINATUMOMAB
     Indication: Non-Hodgkin^s lymphoma
     Dosage: 9 MICROGRAM, QD, DAY 1-7
     Route: 042
     Dates: start: 20220301
  2. BLINATUMOMAB [Suspect]
     Active Substance: BLINATUMOMAB
     Dosage: 28 MICROGRAM, QD,DAY 8-14
     Route: 042
  3. BLINATUMOMAB [Suspect]
     Active Substance: BLINATUMOMAB
     Dosage: 112 MICROGRAM, QD,DAY 15-56
     Route: 042
  4. BLINATUMOMAB [Suspect]
     Active Substance: BLINATUMOMAB
     Dosage: 112 MICROGRAM, QD,DAY 1-7
     Route: 042
  5. BLINATUMOMAB [Suspect]
     Active Substance: BLINATUMOMAB
     Dosage: TOTAL DOSE ADMINISTERED: 2891 MCG
     Route: 040
  6. LENALIDOMIDE [Suspect]
     Active Substance: LENALIDOMIDE
     Indication: Non-Hodgkin^s lymphoma
     Dosage: 20 MILLIGRAM, QD, DAY 1-21, 29-49
     Route: 048
     Dates: start: 20220301
  7. LENALIDOMIDE [Suspect]
     Active Substance: LENALIDOMIDE
     Dosage: 20 MILLIGRAM, QD, DAY 1-21
     Route: 048
  8. LENALIDOMIDE [Suspect]
     Active Substance: LENALIDOMIDE
     Dosage: 20 MILLIGRAM, QD, DAY 1-21
     Route: 048
  9. LENALIDOMIDE [Suspect]
     Active Substance: LENALIDOMIDE
     Dosage: TOTAL DOSE ADMINISTERED: 680 MG
     Route: 048

REACTIONS (5)
  - Sepsis [Recovered/Resolved]
  - Atrial fibrillation [Recovered/Resolved]
  - Diarrhoea [Recovered/Resolved]
  - Bronchitis [Recovered/Resolved]
  - Strongyloidiasis [Recovered/Resolved]

NARRATIVE: CASE EVENT DATE: 20220101
